FAERS Safety Report 25888045 (Version 1)
Quarter: 2025Q4

REPORT INFORMATION
  Report Type: Spontaneous
  Country: US (occurrence: US)
  Receive Date: 20251007
  Receipt Date: 20251007
  Transmission Date: 20260117
  Serious: Yes (Other)
  Sender: ALEXION PHARMACEUTICALS
  Company Number: US-AstraZeneca-CH-00963982A

PATIENT
  Sex: Female

DRUGS (1)
  1. ONGLYZA [Suspect]
     Active Substance: SAXAGLIPTIN HYDROCHLORIDE
     Dosage: UNK
     Route: 065
     Dates: start: 2009, end: 2023

REACTIONS (4)
  - Myocardial infarction [Unknown]
  - Palpitations [Unknown]
  - Blood glucose decreased [Unknown]
  - Malaise [Unknown]
